FAERS Safety Report 6842365-7 (Version None)
Quarter: 2010Q3

REPORT INFORMATION
  Report Type: 
  Country: None (occurrence: None)
  Receive Date: 20100714
  Receipt Date: 20070726
  Transmission Date: 20110219
  Serious: No
  Sender: FDA-Public Use
  Company Number: US-PFIZER INC-2007063798

PATIENT
  Sex: Female
  Weight: 90.9 kg

DRUGS (5)
  1. CHANTIX [Suspect]
     Indication: SMOKING CESSATION THERAPY
     Dates: start: 20070401
  2. ADVAIR DISKUS 100/50 [Concomitant]
  3. PAXIL [Concomitant]
  4. XANAX [Concomitant]
     Indication: DEPRESSION
  5. MUCINEX [Concomitant]

REACTIONS (5)
  - DIZZINESS [None]
  - FEELING ABNORMAL [None]
  - MALAISE [None]
  - NAUSEA [None]
  - TREMOR [None]
